FAERS Safety Report 10031678 (Version 1)
Quarter: 2014Q1

REPORT INFORMATION
  Report Type: Spontaneous
  Country: US (occurrence: US)
  Receive Date: 20140324
  Receipt Date: 20140324
  Transmission Date: 20141002
  Serious: Yes (Hospitalization)
  Sender: FDA-Public Use
  Company Number: US-INCYTE CORPORATION-2014IN000714

PATIENT
  Age: 71 Year
  Sex: Female

DRUGS (3)
  1. JAKAFI [Suspect]
     Dosage: 5 MG, BID
     Route: 048
     Dates: start: 20140318
  2. ZOLPIDEM TARTRATE [Concomitant]
  3. CYCLOSPORIN MODIFIED [Concomitant]

REACTIONS (1)
  - Hospitalisation [Unknown]
